FAERS Safety Report 22039151 (Version 1)
Quarter: 2023Q1

REPORT INFORMATION
  Report Type: Spontaneous
  Country: US (occurrence: US)
  Receive Date: 20230227
  Receipt Date: 20230227
  Transmission Date: 20230418
  Serious: Yes (Hospitalization)
  Sender: FDA-Public Use
  Company Number: US-drreddys-LIT/USA/23/0161635

PATIENT
  Age: 64 Year
  Sex: Male

DRUGS (4)
  1. DAPTOMYCIN [Suspect]
     Active Substance: DAPTOMYCIN
     Indication: Enterococcal infection
  2. DAPTOMYCIN [Suspect]
     Active Substance: DAPTOMYCIN
     Indication: Bacteraemia
     Dosage: DOSE INCREASED
  3. MICAFUNGIN [Suspect]
     Active Substance: MICAFUNGIN
     Indication: Septic shock
  4. MEROPENEM [Suspect]
     Active Substance: MEROPENEM
     Indication: Septic shock

REACTIONS (4)
  - Seizure [Recovering/Resolving]
  - Nystagmus [Recovering/Resolving]
  - Sepsis [Recovering/Resolving]
  - Drug ineffective [Unknown]
